FAERS Safety Report 19602131 (Version 10)
Quarter: 2024Q1

REPORT INFORMATION
  Report Type: Spontaneous
  Country: US (occurrence: US)
  Receive Date: 20210722
  Receipt Date: 20240219
  Transmission Date: 20240410
  Serious: Yes (Hospitalization, Other)
  Sender: FDA-Public Use
  Company Number: US-SA-SAC20210721000089

PATIENT
  Age: 30 Year
  Sex: Female

DRUGS (5)
  1. DUPIXENT [Suspect]
     Active Substance: DUPILUMAB
     Indication: Asthma
     Dosage: 200 MG, QOW
     Route: 058
     Dates: start: 20210326
  2. DUPIXENT [Suspect]
     Active Substance: DUPILUMAB
     Indication: Hidradenitis
  3. DUPIXENT [Suspect]
     Active Substance: DUPILUMAB
     Indication: Asthma
     Dosage: 200 MG, QOW
     Route: 058
     Dates: start: 2021
  4. DUPIXENT [Suspect]
     Active Substance: DUPILUMAB
     Indication: Hidradenitis
  5. HUMIRA [Concomitant]
     Active Substance: ADALIMUMAB

REACTIONS (10)
  - Asthma [Not Recovered/Not Resolved]
  - Atrial fibrillation [Unknown]
  - Pneumonia [Unknown]
  - Urinary tract infection [Unknown]
  - Influenza [Unknown]
  - Atrioventricular block second degree [Unknown]
  - Fatigue [Unknown]
  - Pain [Unknown]
  - Product use in unapproved indication [Unknown]
  - Therapeutic response decreased [Unknown]

NARRATIVE: CASE EVENT DATE: 20210101
